FAERS Safety Report 6013923-7 (Version None)
Quarter: 2008Q4

REPORT INFORMATION
  Report Type: 
  Country: None (occurrence: None)
  Receive Date: 20081219
  Receipt Date: 20081208
  Transmission Date: 20090506
  Serious: Yes (Other)
  Sender: FDA-Public Use
  Company Number: CA-JNJFOC-20080905846

PATIENT
  Age: 35 Year
  Sex: Female

DRUGS (4)
  1. REMICADE [Suspect]
     Indication: COLITIS ULCERATIVE
     Dosage: 4 TOTAL INFUSIONS ADMINISTERED (WEEK 0, 2, 6 AND 14; DATES NOT REPORTED)
     Route: 042
  2. BENADRYL [Concomitant]
     Route: 048
  3. SOLU-CORTEF [Concomitant]
     Indication: PREMEDICATION
     Dosage: ADMINISTERED FOR INFLIXIMAB DOSE 1 - 3 ONLY
  4. OVRAL [Concomitant]
     Indication: CONTRACEPTION

REACTIONS (15)
  - ANOREXIA [None]
  - CHEST PAIN [None]
  - DEPRESSED MOOD [None]
  - DIZZINESS [None]
  - DRY SKIN [None]
  - GASTROOESOPHAGEAL REFLUX DISEASE [None]
  - HOT FLUSH [None]
  - INSOMNIA [None]
  - NAUSEA [None]
  - PALPITATIONS [None]
  - RASH [None]
  - STRESS [None]
  - TREMOR [None]
  - URTICARIA [None]
  - VAGINAL INFECTION [None]
